FAERS Safety Report 5634464-2 (Version None)
Quarter: 2008Q1

REPORT INFORMATION
  Report Type: 
  Country: None (occurrence: None)
  Receive Date: 20080220
  Receipt Date: 20080220
  Transmission Date: 20080703
  Serious: Yes (Hospitalization)
  Sender: FDA-Public Use
  Company Number: None

PATIENT
  Age: 76 Year
  Sex: Male
  Weight: 87.9 kg

DRUGS (2)
  1. COSOPT [Suspect]
     Indication: HYPERTENSION
     Dosage: 1DROPS BID EYE
     Route: 047
     Dates: start: 20070523, end: 20080206
  2. COSOPT [Suspect]
     Indication: INTRAOCULAR PRESSURE INCREASED
     Dosage: 1DROPS BID EYE
     Route: 047
     Dates: start: 20070523, end: 20080206

REACTIONS (4)
  - DRUG HYPERSENSITIVITY [None]
  - EYE IRRITATION [None]
  - EYE PAIN [None]
  - JOINT SWELLING [None]
